FAERS Safety Report 5626237-1 (Version None)
Quarter: 2008Q1

REPORT INFORMATION
  Report Type: 
  Country: None (occurrence: None)
  Receive Date: 20080214
  Receipt Date: 20080208
  Transmission Date: 20080703
  Serious: Yes (Other)
  Sender: FDA-Public Use
  Company Number: B0507423A

PATIENT
  Sex: Female

DRUGS (4)
  1. AVANDAMET [Suspect]
     Dosage: 1TAB TWICE PER DAY
     Route: 048
     Dates: start: 20051004, end: 20070629
  2. ATACAND HCT [Concomitant]
     Indication: BLOOD PRESSURE
     Dates: start: 20070222
  3. METOPROLOL TARTRATE [Concomitant]
     Indication: BLOOD PRESSURE
     Dates: start: 20040707
  4. XANOR [Concomitant]
     Indication: ANXIETY
     Dates: start: 20040101

REACTIONS (1)
  - LEUKOPENIA [None]
